FAERS Safety Report 23041827 (Version 1)
Quarter: 2023Q4

REPORT INFORMATION
  Report Type: Spontaneous
  Country: US (occurrence: US)
  Receive Date: 20231007
  Receipt Date: 20231007
  Transmission Date: 20240109
  Serious: No
  Sender: FDA-Public Use
  Company Number: US-ALXN-A202312862

PATIENT

DRUGS (1)
  1. STRENSIQ [Suspect]
     Active Substance: ASFOTASE ALFA
     Indication: Musculoskeletal disorder
     Dosage: UNK
     Route: 065

REACTIONS (2)
  - Musculoskeletal disorder [Unknown]
  - Disease recurrence [Unknown]
